FAERS Safety Report 17033324 (Version 3)
Quarter: 2020Q3

REPORT INFORMATION
  Report Type: Spontaneous
  Country: US (occurrence: US)
  Receive Date: 20191114
  Receipt Date: 20200715
  Transmission Date: 20201102
  Serious: No
  Sender: FDA-Public Use
  Company Number: US-SA-2019SA314966

PATIENT

DRUGS (4)
  1. MINOCYCLINE [Concomitant]
     Active Substance: MINOCYCLINE HYDROCHLORIDE
     Dosage: UNK MG
     Route: 065
  2. DUPIXENT [Suspect]
     Active Substance: DUPILUMAB
     Indication: DERMATITIS
     Dosage: 300 MG, QOW
     Route: 058
     Dates: start: 20180809
  3. POLYMYXIN B. [Concomitant]
     Active Substance: POLYMYXIN B
  4. EUCRISA [Concomitant]
     Active Substance: CRISABOROLE

REACTIONS (2)
  - Dermatitis [Not Recovered/Not Resolved]
  - Condition aggravated [Not Recovered/Not Resolved]
